FAERS Safety Report 4815068-8 (Version None)
Quarter: 2005Q4

REPORT INFORMATION
  Report Type: 
  Country: None (occurrence: None)
  Receive Date: 20051027
  Receipt Date: 20051014
  Transmission Date: 20060501
  Serious: Yes (Other)
  Sender: FDA-Public Use
  Company Number: 2005143020

PATIENT
  Sex: Male

DRUGS (18)
  1. LIPITOR [Suspect]
     Indication: BLOOD CHOLESTEROL INCREASED
     Dosage: 20 MG (20 MG, 1 IN 1 D), ORAL
     Route: 048
     Dates: start: 19980101
  2. GLUCOTROL [Suspect]
     Indication: DIABETES MELLITUS
     Dosage: ORAL
     Route: 048
  3. GABAPENTIN [Suspect]
     Indication: NEUROPATHY
     Dosage: ORAL
     Route: 048
  4. GLIPIZIDE [Suspect]
     Indication: DIABETES MELLITUS
     Dosage: ORAL
     Route: 048
  5. SPIRIVA [Suspect]
     Indication: CHRONIC OBSTRUCTIVE PULMONARY DISEASE
     Dates: start: 20050901
  6. LANTUS [Suspect]
     Indication: DIABETES MELLITUS
     Dates: start: 20050201
  7. MOBIC [Concomitant]
  8. METFORMIN HCL [Concomitant]
  9. DIOVAN HCT [Concomitant]
  10. LEXAPRO [Concomitant]
  11. NIASPAN [Concomitant]
  12. ACTOS [Concomitant]
  13. MINOXIDIL [Concomitant]
  14. DILTIAZEM [Concomitant]
  15. ALBUTEROL [Concomitant]
  16. ACETYLSALICYLIC ACID SRT [Concomitant]
  17. FORADIL [Concomitant]
  18. COREG [Concomitant]

REACTIONS (10)
  - ARTHRITIS [None]
  - BLOOD CHOLESTEROL INCREASED [None]
  - BREATH SOUNDS ABNORMAL [None]
  - CHRONIC OBSTRUCTIVE PULMONARY DISEASE [None]
  - EMPHYSEMA [None]
  - GLAUCOMA [None]
  - IMPAIRED WORK ABILITY [None]
  - MYOCARDIAL INFARCTION [None]
  - NEUROPATHY [None]
  - WEIGHT INCREASED [None]
